FAERS Safety Report 4772859-X (Version None)
Quarter: 2005Q3

REPORT INFORMATION
  Report Type: 
  Country: None (occurrence: None)
  Receive Date: 20050916
  Receipt Date: 20050906
  Transmission Date: 20060218
  Serious: Yes (Life-Threatening, Other)
  Sender: FDA-Public Use
  Company Number: HQWYE637001AUG05

PATIENT
  Age: 70 Year
  Sex: Male

DRUGS (7)
  1. AMIODARONE HCL [Suspect]
     Indication: ATRIAL FIBRILLATION
     Dosage: 200 MG 1X PER 1 DAY ORAL
     Route: 048
     Dates: start: 20030423, end: 20050622
  2. TAMBOCOR [Suspect]
     Indication: ATRIAL FIBRILLATION
     Dosage: 50 MG 3X PER 1 DAY ORAL
     Route: 048
     Dates: start: 20031203, end: 20041006
  3. TAMBOCOR [Suspect]
     Indication: ATRIAL FIBRILLATION
     Dosage: 50 MG 3X PER 1 DAY ORAL
     Route: 048
     Dates: start: 20050622, end: 20050715
  4. DIGOXIN [Concomitant]
  5. BUFFERIN [Concomitant]
  6. LIPOVAS ^FARMASIMES^ (FENOFIBRATE) [Concomitant]
  7. MUCOSTA (REBAMIPIDE) [Concomitant]

REACTIONS (3)
  - ALANINE AMINOTRANSFERASE INCREASED [None]
  - DRUG INTERACTION [None]
  - HEPATIC FUNCTION ABNORMAL [None]
